FAERS Safety Report 22787678 (Version 9)
Quarter: 2025Q2

REPORT INFORMATION
  Report Type: Report from Study
  Country: CA (occurrence: CA)
  Receive Date: 20230804
  Receipt Date: 20250410
  Transmission Date: 20250716
  Serious: Yes (Other)
  Sender: TAKEDA
  Company Number: CA-TAKEDA-2023TUS028043

PATIENT
  Age: 68 Year
  Sex: Female

DRUGS (23)
  1. VEDOLIZUMAB [Suspect]
     Active Substance: VEDOLIZUMAB
     Indication: Crohn^s disease
  2. VEDOLIZUMAB [Suspect]
     Active Substance: VEDOLIZUMAB
  3. VEDOLIZUMAB [Suspect]
     Active Substance: VEDOLIZUMAB
  4. VEDOLIZUMAB [Suspect]
     Active Substance: VEDOLIZUMAB
     Dosage: 300 MILLIGRAM, Q4WEEKS
     Dates: start: 20230803
  5. VEDOLIZUMAB [Suspect]
     Active Substance: VEDOLIZUMAB
     Dosage: 300 MILLIGRAM, Q4WEEKS
  6. VEDOLIZUMAB [Suspect]
     Active Substance: VEDOLIZUMAB
     Dosage: 300 MILLIGRAM, Q4WEEKS
  7. VEDOLIZUMAB [Suspect]
     Active Substance: VEDOLIZUMAB
     Dosage: 300 MILLIGRAM, Q4WEEKS
  8. VEDOLIZUMAB [Suspect]
     Active Substance: VEDOLIZUMAB
     Dosage: 300 MILLIGRAM, Q4WEEKS
  9. VEDOLIZUMAB [Suspect]
     Active Substance: VEDOLIZUMAB
     Dosage: 300 MILLIGRAM, Q4WEEKS
  10. MESALAMINE [Concomitant]
     Active Substance: MESALAMINE
  11. PANTOPRAZOLE [Concomitant]
     Active Substance: PANTOPRAZOLE
  12. MONTELUKAST [Concomitant]
     Active Substance: MONTELUKAST
  13. SPIRIVA [Concomitant]
     Active Substance: TIOTROPIUM BROMIDE MONOHYDRATE
  14. ZENHALE [Concomitant]
     Active Substance: FORMOTEROL FUMARATE\MOMETASONE FUROATE
  15. ALBUTEROL [Concomitant]
     Active Substance: ALBUTEROL
  16. MESALAMINE [Concomitant]
     Active Substance: MESALAMINE
  17. TYLENOL [Concomitant]
     Active Substance: ACETAMINOPHEN
  18. TRAMADOL [Concomitant]
     Active Substance: TRAMADOL
  19. AMCINONIDE [Concomitant]
     Active Substance: AMCINONIDE
  20. DOMPERIDONE [Concomitant]
     Active Substance: DOMPERIDONE
  21. Cortiment [Concomitant]
  22. Salofalk [Concomitant]
  23. FERROUS SULFATE [Concomitant]
     Active Substance: FERROUS SULFATE

REACTIONS (10)
  - Crohn^s disease [Unknown]
  - Stomatitis [Unknown]
  - Pyrexia [Unknown]
  - Oropharyngeal pain [Unknown]
  - Therapeutic reaction time decreased [Not Recovered/Not Resolved]
  - Frequent bowel movements [Recovered/Resolved]
  - Off label use [Unknown]
  - Blood iron decreased [Not Recovered/Not Resolved]
  - Nasopharyngitis [Recovering/Resolving]
  - Bronchitis [Recovered/Resolved]

NARRATIVE: CASE EVENT DATE: 20230506
